FAERS Safety Report 12771841 (Version 5)
Quarter: 2018Q3

REPORT INFORMATION
  Report Type: Spontaneous
  Country: US (occurrence: US)
  Receive Date: 20160922
  Receipt Date: 20180713
  Transmission Date: 20181010
  Serious: Yes (Other)
  Sender: FDA-Public Use
  Company Number: US-PFIZER INC-2016442531

PATIENT
  Sex: Female

DRUGS (3)
  1. XANAX [Suspect]
     Active Substance: ALPRAZOLAM
     Dosage: 4 MG, 4X/DAY(FOUR 1MG 4 TIMES A DAY)
  2. XANAX [Suspect]
     Active Substance: ALPRAZOLAM
     Indication: STRESS
     Dosage: 1 MG, UNK
  3. XANAX [Suspect]
     Active Substance: ALPRAZOLAM
     Dosage: 1 MG, UNK

REACTIONS (11)
  - Breast cancer [Unknown]
  - Palpitations [Unknown]
  - Hypoaesthesia [Unknown]
  - Sleep disorder [Unknown]
  - Walking aid user [Unknown]
  - Asthenia [Not Recovered/Not Resolved]
  - Hypoaesthesia oral [Unknown]
  - Wheelchair user [Unknown]
  - Asphyxia [Unknown]
  - Eating disorder [Unknown]
  - Malaise [Unknown]

NARRATIVE: CASE EVENT DATE: 20170627
